FAERS Safety Report 7716756-6 (Version None)
Quarter: 2011Q3

REPORT INFORMATION
  Report Type: 
  Country: None (occurrence: None)
  Receive Date: 20110829
  Receipt Date: 20110818
  Transmission Date: 20111222
  Serious: Yes (Hospitalization)
  Sender: FDA-Public Use
  Company Number: FR-ASTRAZENECA-2011SE49763

PATIENT
  Age: 63 Year
  Sex: Male

DRUGS (3)
  1. RAMIPRIL [Concomitant]
     Route: 048
  2. TENORETIC 100 [Suspect]
     Dosage: 50/12.5 MG/DAY
     Route: 048
     Dates: end: 20110504
  3. SIMVASTATIN [Concomitant]
     Indication: DYSLIPIDAEMIA
     Route: 048

REACTIONS (4)
  - MALAISE [None]
  - CONFUSIONAL STATE [None]
  - DISORIENTATION [None]
  - HALLUCINATION [None]
